FAERS Safety Report 21511846 (Version 2)
Quarter: 2022Q4

REPORT INFORMATION
  Report Type: Spontaneous
  Country: US (occurrence: US)
  Receive Date: 20221027
  Receipt Date: 20221102
  Transmission Date: 20230113
  Serious: No
  Sender: FDA-Public Use
  Company Number: US-AMGEN-USASP2022183071

PATIENT
  Age: 60 Year
  Sex: Female

DRUGS (2)
  1. AIMOVIG [Suspect]
     Active Substance: ERENUMAB-AOOE
     Indication: Headache
     Dosage: 70 MILLIGRAM, QMO
     Route: 065
     Dates: start: 202205
  2. LIDOCAINE [Concomitant]
     Active Substance: LIDOCAINE
     Indication: Headache
     Dosage: 5 PERCENT
     Route: 065

REACTIONS (2)
  - Accidental exposure to product [Unknown]
  - Drug ineffective [Unknown]

NARRATIVE: CASE EVENT DATE: 20220101
